FAERS Safety Report 14605509 (Version 2)
Quarter: 2018Q3

REPORT INFORMATION
  Report Type: Other
  Country: US (occurrence: US)
  Receive Date: 20180306
  Receipt Date: 20180831
  Transmission Date: 20181010
  Serious: No
  Sender: FDA-Public Use
  Company Number: US-INTERCEPT-PMOCA2018000004

PATIENT

DRUGS (6)
  1. OCALIVA [Suspect]
     Active Substance: OBETICHOLIC ACID
     Indication: PRIMARY BILIARY CHOLANGITIS
     Dosage: 5 MG, QD
     Route: 048
     Dates: start: 20170830
  2. ZETIA [Concomitant]
     Active Substance: EZETIMIBE
  3. EZETIMIBE. [Concomitant]
     Active Substance: EZETIMIBE
  4. URSODIOL. [Concomitant]
     Active Substance: URSODIOL
  5. OCALIVA [Suspect]
     Active Substance: OBETICHOLIC ACID
     Dosage: 10 MG, QD
     Route: 048
  6. OCALIVA [Suspect]
     Active Substance: OBETICHOLIC ACID
     Dosage: 5 MG, UNK

REACTIONS (2)
  - Pruritus [Unknown]
  - Sinusitis [Unknown]

NARRATIVE: CASE EVENT DATE: 20171229
